FAERS Safety Report 17632214 (Version 1)
Quarter: 2020Q2

REPORT INFORMATION
  Report Type: Spontaneous
  Country: US (occurrence: US)
  Receive Date: 20200406
  Receipt Date: 20200406
  Transmission Date: 20200713
  Serious: Yes (Death, Hospitalization, Other)
  Sender: FDA-Public Use
  Company Number: US-AMGEN-USASP2020052431

PATIENT

DRUGS (2)
  1. ALIROCUMAB [Concomitant]
     Active Substance: ALIROCUMAB
     Indication: PRODUCT USED FOR UNKNOWN INDICATION
     Dosage: UNK
  2. EVOLOCUMAB [Suspect]
     Active Substance: EVOLOCUMAB
     Indication: HYPERCHOLESTEROLAEMIA
     Dosage: UNK
     Route: 065

REACTIONS (6)
  - Lung adenocarcinoma [Fatal]
  - Hospitalisation [Unknown]
  - Injection site reaction [Unknown]
  - Nausea [Unknown]
  - Rhinorrhoea [Unknown]
  - Infection [Unknown]
